FAERS Safety Report 7208612-7 (Version None)
Quarter: 2010Q4

REPORT INFORMATION
  Report Type: 
  Country: None (occurrence: None)
  Receive Date: 20101222
  Receipt Date: 20101206
  Transmission Date: 20110411
  Serious: Yes (Other)
  Sender: FDA-Public Use
  Company Number: ACO_20790_2010

PATIENT
  Age: 54 Year
  Sex: Female
  Weight: 96.6 kg

DRUGS (6)
  1. AMPYRA [Suspect]
     Indication: GAIT DISTURBANCE
     Dosage: 10 MG, QD, ORAL, 10 MG, BID, ORAL,
     Route: 048
     Dates: start: 20100801, end: 20100801
  2. LEXAPRO [Suspect]
     Indication: PRODUCT USED FOR UNKNOWN INDICATION
  3. VALIUM	/00017001/ (DIAZEPAM) [Concomitant]
  4. ANTIHYPERTENSIVES [Concomitant]
  5. COPAXONE /03175301/ (GLATIRAMER ACETATE, MANNITOL [Concomitant]
  6. LIPITOR [Concomitant]

REACTIONS (7)
  - DIZZINESS [None]
  - FATIGUE [None]
  - FEELING ABNORMAL [None]
  - HEMIPARESIS [None]
  - INAPPROPRIATE SCHEDULE OF DRUG ADMINISTRATION [None]
  - MULTIPLE SCLEROSIS [None]
  - VISION BLURRED [None]
